FAERS Safety Report 8313756 (Version 4)
Quarter: 2013Q3

REPORT INFORMATION
  Report Type: Spontaneous
  Country: US (occurrence: US)
  Receive Date: 20111228
  Receipt Date: 20130703
  Transmission Date: 20140515
  Serious: Yes (Hospitalization)
  Sender: FDA-Public Use
  Company Number: US-US-EMD SERONO, INC.-7103298

PATIENT
  Age: 23 Year
  Sex: Female
  Weight: 64 kg

DRUGS (5)
  1. REBIF [Suspect]
     Indication: MULTIPLE SCLEROSIS
     Route: 058
     Dates: end: 201011
  2. REBIF [Suspect]
     Route: 058
     Dates: start: 20111115
  3. REBIF [Suspect]
     Route: 058
     Dates: start: 201201
  4. ALBUTEROL                          /00139501/ [Concomitant]
     Indication: ASTHMA
  5. IMPLANON [Concomitant]
     Indication: CONTRACEPTION
     Dates: start: 20111115

REACTIONS (8)
  - Multiple sclerosis relapse [Recovered/Resolved]
  - Alopecia [Not Recovered/Not Resolved]
  - Stress [Not Recovered/Not Resolved]
  - Urinary incontinence [Not Recovered/Not Resolved]
  - Headache [Not Recovered/Not Resolved]
  - Myalgia [Unknown]
  - Injection site bruising [Not Recovered/Not Resolved]
  - Injection site pain [Not Recovered/Not Resolved]
